FAERS Safety Report 6188305-8 (Version None)
Quarter: 2009Q2

REPORT INFORMATION
  Report Type: 
  Country: None (occurrence: None)
  Receive Date: 20090513
  Receipt Date: 20090430
  Transmission Date: 20091009
  Serious: Yes (Hospitalization, Other)
  Sender: FDA-Public Use
  Company Number: US-PFIZER INC-2009208804

PATIENT
  Age: 43 Year
  Sex: Female
  Weight: 53.515 kg

DRUGS (4)
  1. CHANTIX [Suspect]
     Indication: SMOKING CESSATION THERAPY
     Dosage: 1 MG, UNK
     Dates: start: 20090101, end: 20090101
  2. OXYCONTIN [Concomitant]
     Dosage: UNKNOWN
  3. FENTANYL [Concomitant]
     Dosage: UNK
  4. DRUG, UNSPECIFIED [Concomitant]
     Dosage: UNK

REACTIONS (5)
  - AGGRESSION [None]
  - DELUSION [None]
  - HALLUCINATION [None]
  - PARANOIA [None]
  - SUICIDAL IDEATION [None]
